FAERS Safety Report 15830338 (Version 1)
Quarter: 2019Q1

REPORT INFORMATION
  Report Type: Spontaneous
  Country: US (occurrence: US)
  Receive Date: 20190115
  Receipt Date: 20190115
  Transmission Date: 20190417
  Serious: No
  Sender: FDA-Public Use
  Company Number: US-REGENERON PHARMACEUTICALS, INC.-2018-37736

PATIENT

DRUGS (2)
  1. EYLEA [Suspect]
     Active Substance: AFLIBERCEPT
     Indication: RETINAL HAEMORRHAGE
     Dosage: UNK, EVERY 7 WEEKS, RIGHT EYE
     Route: 031
  2. EYLEA [Suspect]
     Active Substance: AFLIBERCEPT
     Dosage: UNK, EVERY 7 WEEKS, RIGHT EYE, LAST DOSE
     Route: 031
     Dates: start: 20180823, end: 20180823

REACTIONS (3)
  - Off label use [Unknown]
  - Retinal disorder [Unknown]
  - Depression [Unknown]

NARRATIVE: CASE EVENT DATE: 20180823
